FAERS Safety Report 23645146 (Version 1)
Quarter: 2024Q1

REPORT INFORMATION
  Report Type: Spontaneous
  Country: US (occurrence: US)
  Receive Date: 20240318
  Receipt Date: 20240318
  Transmission Date: 20240410
  Serious: No
  Sender: FDA-Public Use
  Company Number: US-ALKERMES INC.-ALK-2024-000678

PATIENT
  Age: 24 Year
  Sex: Female

DRUGS (1)
  1. VIVITROL [Suspect]
     Active Substance: NALTREXONE
     Indication: Off label use
     Dosage: 380 MILLIGRAM, QMO
     Route: 030
     Dates: end: 2024

REACTIONS (7)
  - Oropharyngeal pain [Unknown]
  - Facial pain [Unknown]
  - Facial spasm [Recovered/Resolved]
  - Swelling face [Recovered/Resolved]
  - Off label use [Not Recovered/Not Resolved]
  - Hypoaesthesia [Unknown]
  - Muscle twitching [Recovered/Resolved]

NARRATIVE: CASE EVENT DATE: 20240311
